FAERS Safety Report 13775917 (Version 7)
Quarter: 2018Q2

REPORT INFORMATION
  Report Type: Report from Study
  Country: US (occurrence: US)
  Receive Date: 20170721
  Receipt Date: 20180525
  Transmission Date: 20180711
  Serious: Yes (Other)
  Sender: FDA-Public Use
  Company Number: US-INCYTE CORPORATION-2017IN005105

PATIENT

DRUGS (27)
  1. JAKAFI [Suspect]
     Active Substance: RUXOLITINIB
     Indication: POLYCYTHAEMIA VERA
     Dosage: 10 MG, BID
     Route: 065
     Dates: start: 20160928, end: 20161027
  2. HYDREA [Concomitant]
     Active Substance: HYDROXYUREA
     Dosage: 500 MG, TID 4 DAYS/WK, BID 3 DAYS/WK
     Route: 065
     Dates: start: 20170427, end: 20180125
  3. KETOCONAZOLE. [Concomitant]
     Active Substance: KETOCONAZOLE
     Indication: FUNGAL INFECTION
     Dosage: SMALL AMOUNT, BID
     Route: 065
     Dates: start: 20140218, end: 20151112
  4. METFORMIN [Concomitant]
     Active Substance: METFORMIN HYDROCHLORIDE
     Dosage: 850 MG, TID
     Route: 065
     Dates: start: 20160428, end: 20161013
  5. ASA [Concomitant]
     Active Substance: ASPIRIN
     Indication: POLYCYTHAEMIA VERA
     Dosage: 81 MG, QD
     Route: 065
     Dates: start: 20060410
  6. HYZAAR [Concomitant]
     Active Substance: HYDROCHLOROTHIAZIDE\LOSARTAN POTASSIUM
     Indication: HYPERTENSION
     Dosage: 1 DF, QD
     Route: 065
     Dates: start: 20131119, end: 20161013
  7. JAKAFI [Suspect]
     Active Substance: RUXOLITINIB
     Dosage: 10 MG, BID
     Route: 065
     Dates: start: 20161203, end: 20161216
  8. ACTOS [Concomitant]
     Active Substance: PIOGLITAZONE HYDROCHLORIDE
     Indication: DIABETES MELLITUS
     Dosage: 15 MG, QD
     Route: 065
     Dates: start: 20140120
  9. HYDREA [Concomitant]
     Active Substance: HYDROXYUREA
     Dosage: 500 MG, BID 4 DAYS/WEEK + 500 MG TID ON M,W,F
     Route: 065
     Dates: start: 20151008, end: 20160809
  10. NYSTATIN. [Concomitant]
     Active Substance: NYSTATIN
     Indication: RASH
     Dosage: UNK, BID
     Route: 065
     Dates: start: 20170825
  11. HYDREA [Concomitant]
     Active Substance: HYDROXYUREA
     Indication: POLYCYTHAEMIA VERA
     Dosage: 500 MG, BID
     Route: 065
     Dates: start: 20140527, end: 20151007
  12. IMDUR [Concomitant]
     Active Substance: ISOSORBIDE MONONITRATE
     Indication: ANGINA PECTORIS
     Dosage: 30 MG, QD
     Route: 065
     Dates: start: 20140422
  13. METFORMIN [Concomitant]
     Active Substance: METFORMIN HYDROCHLORIDE
     Indication: DIABETES MELLITUS
     Dosage: 1000 MG, BID
     Route: 065
     Dates: start: 20140102, end: 20160427
  14. NORCO [Concomitant]
     Active Substance: ACETAMINOPHEN\HYDROCODONE BITARTRATE
     Indication: PELVIC FRACTURE
     Dosage: 5/325 MG PRN
     Route: 065
     Dates: start: 20141201, end: 20150212
  15. FELODIPINE. [Concomitant]
     Active Substance: FELODIPINE
     Indication: ANGINA PECTORIS
  16. GLIPIZIDE. [Concomitant]
     Active Substance: GLIPIZIDE
     Indication: DIABETES MELLITUS
     Dosage: 5 MG, QD
     Route: 065
     Dates: start: 20140422
  17. HYDREA [Concomitant]
     Active Substance: HYDROXYUREA
     Dosage: 500 MG, TID 4 DAYS/WK, BID 3 DAYS/WK
     Route: 065
     Dates: start: 20160810, end: 20160927
  18. HYDREA [Concomitant]
     Active Substance: HYDROXYUREA
     Dosage: 500 MG, TID 4 DAYS/WK BID 3 DAYS/WK
     Route: 065
     Dates: start: 20161217, end: 20170426
  19. HYDREA [Concomitant]
     Active Substance: HYDROXYUREA
     Dosage: 500 MG, TID
     Route: 065
     Dates: start: 20180223
  20. JAKAFI [Suspect]
     Active Substance: RUXOLITINIB
     Dosage: 5 MG, BID
     Route: 065
     Dates: start: 20161028, end: 20161202
  21. ATENOLOL. [Concomitant]
     Active Substance: ATENOLOL
     Indication: HYPERTENSION
     Dosage: 100 MG, QD
     Route: 065
     Dates: start: 20140201
  22. HYDREA [Concomitant]
     Active Substance: HYDROXYUREA
     Dosage: 500 MG, TID 5 DAYS/WEEK, BID 2 DAYS/WEEK
     Route: 065
     Dates: start: 20170427, end: 20170427
  23. HYDREA [Concomitant]
     Active Substance: HYDROXYUREA
     Dosage: 500 MG, TID 5 DAYS/WK, BID 2 DAYS/WK
     Route: 065
     Dates: start: 20180126, end: 20180222
  24. FELODIPINE. [Concomitant]
     Active Substance: FELODIPINE
     Indication: HYPERTENSION
     Dosage: 10 MG, QD
     Route: 065
     Dates: start: 20140424
  25. ZOCOR [Concomitant]
     Active Substance: SIMVASTATIN
     Indication: HYPERLIPIDAEMIA
     Dosage: 20 MG, QD
     Route: 065
     Dates: start: 20141013
  26. HYZAAR [Concomitant]
     Active Substance: HYDROCHLOROTHIAZIDE\LOSARTAN POTASSIUM
     Dosage: 1 DF, QID
     Dates: start: 20170228
  27. METFORMIN [Concomitant]
     Active Substance: METFORMIN HYDROCHLORIDE
     Dosage: 1000 MG, BID
     Route: 065
     Dates: start: 20161014

REACTIONS (8)
  - Haematocrit increased [Recovered/Resolved]
  - Lymphocyte count decreased [Recovered/Resolved]
  - Bradycardia [Recovered/Resolved]
  - Haematocrit decreased [Recovered/Resolved]
  - Haemoglobin decreased [Recovered/Resolved]
  - Cough [Recovered/Resolved]
  - Lymphocyte count decreased [Recovered/Resolved]
  - Bradycardia [Recovered/Resolved]

NARRATIVE: CASE EVENT DATE: 20161013
